FAERS Safety Report 23325505 (Version 2)
Quarter: 2023Q4

REPORT INFORMATION
  Report Type: Spontaneous
  Country: JP (occurrence: JP)
  Receive Date: 20231221
  Receipt Date: 20231229
  Transmission Date: 20240110
  Serious: Yes (Life-Threatening, Hospitalization, Other)
  Sender: FDA-Public Use
  Company Number: JP-Accord-396438

PATIENT
  Age: 80 Year
  Sex: Male
  Weight: 37.7 kg

DRUGS (14)
  1. ZOLEDRONIC ACID [Suspect]
     Active Substance: ZOLEDRONIC ACID
     Indication: Prostate cancer metastatic
     Dosage: TOTAL DOSE (MG): 336
  2. MAGNESIUM OXIDE [Suspect]
     Active Substance: MAGNESIUM OXIDE
  3. GOSERELIN ACETATE [Concomitant]
     Active Substance: GOSERELIN ACETATE
     Indication: Prostate cancer metastatic
  4. BICALUTAMIDE [Concomitant]
     Active Substance: BICALUTAMIDE
     Indication: Prostate cancer metastatic
  5. METHYLCOBALAMIN [Concomitant]
     Active Substance: METHYLCOBALAMIN
     Indication: Hormone therapy
  6. PRAVASTATIN [Concomitant]
     Active Substance: PRAVASTATIN
  7. GLYCYRRHIZIN [Concomitant]
     Active Substance: GLYCYRRHIZIN
  8. URSODIOL [Concomitant]
     Active Substance: URSODIOL
  9. BICALUTAMIDE [Concomitant]
     Active Substance: BICALUTAMIDE
  10. LIMAPROST [Concomitant]
     Active Substance: LIMAPROST
  11. ZOLEDRONIC ACID [Suspect]
     Active Substance: ZOLEDRONIC ACID
     Indication: Metastases to bone
  12. GOSERELIN ACETATE [Concomitant]
     Active Substance: GOSERELIN ACETATE
     Indication: Metastases to bone
  13. BICALUTAMIDE [Concomitant]
     Active Substance: BICALUTAMIDE
     Indication: Metastases to bone
  14. GOSERELIN ACETATE [Concomitant]
     Active Substance: GOSERELIN ACETATE
     Indication: Hormone therapy

REACTIONS (6)
  - Renal tubular acidosis [Recovered/Resolved]
  - Hypocalcaemia [Recovered/Resolved]
  - Renal impairment [Recovered/Resolved]
  - Malnutrition [Recovered/Resolved]
  - Nephrogenic anaemia [Recovered/Resolved]
  - Incorrect product administration duration [Unknown]
